FAERS Safety Report 24084439 (Version 2)
Quarter: 2024Q4

REPORT INFORMATION
  Report Type: Spontaneous
  Country: US (occurrence: US)
  Receive Date: 20240712
  Receipt Date: 20241004
  Transmission Date: 20250115
  Serious: No
  Sender: LUPIN
  Company Number: US-LUPIN PHARMACEUTICALS INC.-2024-05917

PATIENT

DRUGS (1)
  1. AMLODIPINE BESYLATE [Suspect]
     Active Substance: AMLODIPINE BESYLATE
     Indication: Blood pressure abnormal
     Dosage: UNK, QD
     Route: 065
     Dates: start: 202306, end: 202401

REACTIONS (18)
  - Arthralgia [Not Recovered/Not Resolved]
  - Pain in extremity [Not Recovered/Not Resolved]
  - Back pain [Unknown]
  - Pain in jaw [Not Recovered/Not Resolved]
  - Paraesthesia [Not Recovered/Not Resolved]
  - Gingival recession [Not Recovered/Not Resolved]
  - Vision blurred [Not Recovered/Not Resolved]
  - Pain [Not Recovered/Not Resolved]
  - Frequent bowel movements [Not Recovered/Not Resolved]
  - Bladder disorder [Not Recovered/Not Resolved]
  - Polyuria [Not Recovered/Not Resolved]
  - Paranasal sinus discomfort [Not Recovered/Not Resolved]
  - Oropharyngeal discomfort [Not Recovered/Not Resolved]
  - Chest discomfort [Not Recovered/Not Resolved]
  - Muscle tightness [Not Recovered/Not Resolved]
  - Muscular weakness [Not Recovered/Not Resolved]
  - Neck pain [Not Recovered/Not Resolved]
  - Blood pressure abnormal [Unknown]
